FAERS Safety Report 5151330-X (Version None)
Quarter: 2006Q4

REPORT INFORMATION
  Report Type: 
  Country: None (occurrence: None)
  Receive Date: 20061115
  Receipt Date: 20061025
  Transmission Date: 20070319
  Serious: Yes (Life-Threatening, Hospitalization)
  Sender: FDA-Public Use
  Company Number: JP-JPN-A200604529

PATIENT
  Age: 42 Year
  Sex: Female

DRUGS (3)
  1. PAXIL [Suspect]
     Indication: DEPRESSION
     Dosage: 10MG PER DAY
     Route: 048
     Dates: start: 20061012, end: 20061014
  2. CHINESE HERBAL MEDICINE [Concomitant]
     Dosage: 5G PER DAY
     Route: 048
     Dates: start: 20061012, end: 20061014
  3. RIKKUNSHI-TO [Concomitant]
     Dosage: 5G PER DAY
     Route: 048
     Dates: start: 20061012, end: 20061014

REACTIONS (4)
  - HAEMORRHAGE [None]
  - NERVE INJURY [None]
  - SUICIDE ATTEMPT [None]
  - TENDON INJURY [None]
